FAERS Safety Report 4283113-7 (Version None)
Quarter: 2004Q1

REPORT INFORMATION
  Report Type: 
  Country: None (occurrence: None)
  Receive Date: 20040129
  Receipt Date: 20040115
  Transmission Date: 20041129
  Serious: Yes (Death)
  Sender: FDA-Public Use
  Company Number: 2003032304

PATIENT
  Age: 7 Month
  Sex: Female

DRUGS (1)
  1. NORVASC [Suspect]
     Indication: ILL-DEFINED DISORDER

REACTIONS (2)
  - ACCIDENTAL EXPOSURE [None]
  - OVERDOSE [None]
